FAERS Safety Report 7680574-8 (Version None)
Quarter: 2011Q3

REPORT INFORMATION
  Report Type: 
  Country: None (occurrence: None)
  Receive Date: 20110812
  Receipt Date: 20110803
  Transmission Date: 20111222
  Serious: Yes (Other)
  Sender: FDA-Public Use
  Company Number: FR-JNJFOC-20110603703

PATIENT
  Age: 48 Year
  Sex: Female

DRUGS (4)
  1. REMICADE [Suspect]
     Indication: ANKYLOSING SPONDYLITIS
     Dosage: 60TH INFUSION
     Route: 042
     Dates: start: 20110518
  2. REMICADE [Suspect]
     Dosage: 60TH INFUSION
     Route: 042
  3. REMICADE [Suspect]
     Dosage: 60TH INFUSION
     Route: 042
     Dates: start: 20110518
  4. REMICADE [Suspect]
     Dosage: 60TH INFUSION
     Route: 042

REACTIONS (5)
  - INFUSION RELATED REACTION [None]
  - CHEST DISCOMFORT [None]
  - FEELING HOT [None]
  - RESPIRATORY DISORDER [None]
  - MALAISE [None]
